FAERS Safety Report 19955943 (Version 1)
Quarter: 2021Q4

REPORT INFORMATION
  Report Type: Spontaneous
  Country: US (occurrence: US)
  Receive Date: 20211014
  Receipt Date: 20211014
  Transmission Date: 20220303
  Serious: Yes (Hospitalization, Other)
  Sender: FDA-Public Use
  Company Number: US-PFIZER INC-202101360370

PATIENT
  Age: 54 Year
  Sex: Female

DRUGS (1)
  1. PREGABALIN [Suspect]
     Active Substance: PREGABALIN
     Dosage: 3825 MG

REACTIONS (6)
  - Overdose [Unknown]
  - Seizure [Unknown]
  - Depressed level of consciousness [Unknown]
  - Nystagmus [Unknown]
  - Hypertension [Unknown]
  - Tachycardia [Unknown]
